FAERS Safety Report 17991303 (Version 1)
Quarter: 2020Q3

REPORT INFORMATION
  Report Type: Spontaneous
  Country: US (occurrence: US)
  Receive Date: 20200708
  Receipt Date: 20200708
  Transmission Date: 20201103
  Serious: Yes (Hospitalization, Other)
  Sender: FDA-Public Use
  Company Number: US-SUN PHARMACEUTICAL INDUSTRIES LTD-2019R1-214436

PATIENT
  Age: 76 Year
  Sex: Female

DRUGS (1)
  1. MORPHINE [Suspect]
     Active Substance: MORPHINE
     Indication: NECK PAIN
     Dosage: 30 GRAM, BID
     Route: 048

REACTIONS (8)
  - Toxicity to various agents [Recovering/Resolving]
  - Depressed level of consciousness [Recovering/Resolving]
  - Bradypnoea [Recovering/Resolving]
  - Somnolence [Recovering/Resolving]
  - Muscle twitching [Recovering/Resolving]
  - Miosis [Recovering/Resolving]
  - Mental status changes [Recovering/Resolving]
  - Dysarthria [Recovering/Resolving]
